FAERS Safety Report 6403812-8 (Version None)
Quarter: 2009Q4

REPORT INFORMATION
  Report Type: 
  Country: None (occurrence: None)
  Receive Date: 20091016
  Receipt Date: 20091006
  Transmission Date: 20100525
  Serious: Yes (Hospitalization, Other)
  Sender: FDA-Public Use
  Company Number: US-BAYER-200923412NA

PATIENT
  Age: 0 Hour
  Sex: Male

DRUGS (1)
  1. MIRENA [Suspect]
     Indication: DRUG USE FOR UNKNOWN INDICATION
     Route: 015
     Dates: end: 20090610

REACTIONS (2)
  - CONVULSION NEONATAL [None]
  - SUBARACHNOID HAEMORRHAGE NEONATAL [None]
